FAERS Safety Report 9022436 (Version 1)
Quarter: 2013Q1

REPORT INFORMATION
  Report Type: Report from Study
  Country: BR (occurrence: BR)
  Receive Date: 20130118
  Receipt Date: 20130118
  Transmission Date: 20140127
  Serious: Yes (Hospitalization, Other)
  Sender: FDA-Public Use
  Company Number: BR-SANOFI-AVENTIS-2013SA002969

PATIENT
  Age: 52 Year
  Sex: Female
  Weight: 89 kg

DRUGS (4)
  1. LANTUS [Suspect]
     Indication: TYPE 2 DIABETES MELLITUS
     Route: 058
     Dates: start: 201208, end: 20121120
  2. LANTUS [Suspect]
     Indication: TYPE 2 DIABETES MELLITUS
     Route: 058
  3. DEVICE NOS [Suspect]
     Indication: DEVICE THERAPY
     Dates: start: 201208, end: 20121120
  4. HUMULIN [Concomitant]
     Indication: TYPE 2 DIABETES MELLITUS
     Dosage: DOSE: ACCORDING TO GLYCEMIA

REACTIONS (10)
  - Hypothermia [Unknown]
  - Tremor [Unknown]
  - Metabolic disorder [Unknown]
  - Pneumonia [Unknown]
  - Blood glucose fluctuation [Recovered/Resolved]
  - Wound [Unknown]
  - Hyperkeratosis [Unknown]
  - Hyperglycaemia [Recovered/Resolved]
  - Incorrect dose administered [Unknown]
  - Hyperhidrosis [Recovered/Resolved]
